FAERS Safety Report 5316997-1 (Version None)
Quarter: 2007Q2

REPORT INFORMATION
  Report Type: 
  Country: None (occurrence: None)
  Receive Date: 20070504
  Receipt Date: 20070430
  Transmission Date: 20071010
  Serious: Yes (Death)
  Sender: FDA-Public Use
  Company Number: AU-PFIZER INC-2007034584

PATIENT
  Sex: Female

DRUGS (8)
  1. BLINDED THERAPY [Suspect]
     Route: 048
  2. ACETYLSALICYLIC ACID SRT [Concomitant]
     Dosage: DAILY DOSE:100MG
     Route: 048
  3. LASIX [Concomitant]
     Dosage: DAILY DOSE:40MG
     Route: 048
  4. PERINDOPRIL ERBUMINE [Concomitant]
     Dosage: DAILY DOSE:10MG
     Route: 048
  5. MONODUR [Concomitant]
     Dosage: DAILY DOSE:120MG
     Route: 048
  6. SPIRIVA [Concomitant]
     Route: 055
  7. CARVEDILOL [Concomitant]
     Route: 048
  8. LIPITOR [Concomitant]
     Dosage: DAILY DOSE:20MG
     Route: 048

REACTIONS (1)
  - CARDIAC ARREST [None]
